FAERS Safety Report 25737459 (Version 3)
Quarter: 2025Q3

REPORT INFORMATION
  Report Type: Spontaneous
  Country: AR (occurrence: AR)
  Receive Date: 20250828
  Receipt Date: 20250924
  Transmission Date: 20251020
  Serious: Yes (Hospitalization)
  Sender: BIOMARIN
  Company Number: AR-BIOMARINAP-AR-2025-168385

PATIENT
  Age: 9 Year
  Sex: Female

DRUGS (1)
  1. VOXZOGO [Suspect]
     Active Substance: VOSORITIDE
     Indication: Osteochondrodysplasia
     Dosage: UNK, QD
     Dates: start: 20250403

REACTIONS (3)
  - Epistaxis [Recovered/Resolved]
  - Hypotension [Recovered/Resolved]
  - Presyncope [Recovered/Resolved]

NARRATIVE: CASE EVENT DATE: 20250823
